FAERS Safety Report 5913876-3 (Version None)
Quarter: 2008Q4

REPORT INFORMATION
  Report Type: 
  Country: None (occurrence: None)
  Receive Date: 20081009
  Receipt Date: 20081002
  Transmission Date: 20090506
  Serious: Yes (Other)
  Sender: FDA-Public Use
  Company Number: B0516796A

PATIENT
  Age: 71 Year
  Sex: Male

DRUGS (3)
  1. SERETIDE [Suspect]
     Indication: CHRONIC OBSTRUCTIVE PULMONARY DISEASE
     Route: 055
     Dates: end: 20080501
  2. BETA BLOCKER [Concomitant]
     Indication: HYPERTENSION
  3. SYMBICORT [Concomitant]

REACTIONS (2)
  - CONDITION AGGRAVATED [None]
  - MONOCYTOSIS [None]
